FAERS Safety Report 11439631 (Version 1)
Quarter: 2015Q3

REPORT INFORMATION
  Report Type: Spontaneous
  Country: US (occurrence: US)
  Receive Date: 20150901
  Receipt Date: 20150901
  Transmission Date: 20151125
  Serious: No
  Sender: FDA-Public Use
  Company Number: US-ROCHE-1079304

PATIENT
  Sex: Male

DRUGS (3)
  1. PEGASYS [Suspect]
     Active Substance: PEGINTERFERON ALFA-2A
     Indication: CHRONIC HEPATITIS C
     Route: 058
     Dates: start: 20120611
  2. TELAPREVIR [Suspect]
     Active Substance: TELAPREVIR
     Indication: CHRONIC HEPATITIS C
     Route: 065
     Dates: start: 20120611
  3. RIBAVIRIN. [Suspect]
     Active Substance: RIBAVIRIN
     Indication: CHRONIC HEPATITIS C
     Route: 048
     Dates: start: 20120611

REACTIONS (10)
  - Pruritus [Unknown]
  - Dizziness [Unknown]
  - Visual impairment [Unknown]
  - Hyperhidrosis [Unknown]
  - Nausea [Recovered/Resolved]
  - Fatigue [Unknown]
  - Mood swings [Unknown]
  - Diarrhoea [Not Recovered/Not Resolved]
  - Skin odour abnormal [Unknown]
  - Vomiting [Unknown]
